FAERS Safety Report 9540362 (Version 1)
Quarter: 2013Q3

REPORT INFORMATION
  Report Type: Report from Study
  Country: GB (occurrence: GB)
  Receive Date: 20130920
  Receipt Date: 20130920
  Transmission Date: 20140515
  Serious: Yes (Other)
  Sender: FDA-Public Use
  Company Number: GB-ASTELLAS-2013EU007882

PATIENT
  Sex: 0

DRUGS (4)
  1. PROGRAF [Suspect]
     Indication: INTESTINAL TRANSPLANT
     Dosage: UNK
     Route: 065
  2. PROGRAF [Suspect]
     Indication: ABDOMINAL WALL OPERATION
  3. TACROLIMUS OINTMENT [Suspect]
     Indication: INTESTINAL TRANSPLANT
     Dosage: UNK
     Route: 065
  4. TACROLIMUS OINTMENT [Suspect]
     Indication: ABDOMINAL WALL OPERATION

REACTIONS (3)
  - Off label use [Unknown]
  - Off label use [Unknown]
  - Transplant rejection [Unknown]
